FAERS Safety Report 8708394 (Version 5)
Quarter: 2012Q4

REPORT INFORMATION
  Report Type: 
  Country: US (occurrence: US)
  Receive Date: 20120806
  Receipt Date: 20121106
  Transmission Date: 20130627
  Serious: Yes (Other)
  Sender: FDA-Public Use
  Company Number: US-009507513-2012SP022610

PATIENT

DRUGS (7)
  1. NUVARING [Suspect]
     Indication: CONTRACEPTION
     Dosage: UNK
     Route: 067
     Dates: start: 20060619, end: 20070129
  2. NUVARING [Suspect]
     Dosage: UNK
     Route: 067
     Dates: start: 20070705, end: 200901
  3. NUVARING [Suspect]
     Dosage: UNK
     Dates: start: 20080214, end: 201008
  4. FIORINAL (ACETAMINOPHEN (+) ASPIRIN (+) CAFFEINE) [Concomitant]
  5. SYNTHROID [Concomitant]
  6. DOXYCYCLINE [Concomitant]
  7. SINGULAIR [Concomitant]

REACTIONS (24)
  - Pulmonary embolism [Unknown]
  - Deep vein thrombosis [Unknown]
  - Chronic sinusitis [Unknown]
  - Asthma [Unknown]
  - Nasal septum deviation [Unknown]
  - Nasal turbinate hypertrophy [Unknown]
  - Sinus antrostomy [Unknown]
  - Ethmoid sinus surgery [Unknown]
  - Nasal septal operation [Unknown]
  - Nasal septal operation [Unknown]
  - Hypothyroidism [Unknown]
  - Vitamin D deficiency [Unknown]
  - Pulmonary mass [Unknown]
  - Headache [Unknown]
  - Foetal death [Unknown]
  - Gastrooesophageal reflux disease [Unknown]
  - Vocal cord disorder [Unknown]
  - Dyspnoea [Unknown]
  - Cough [Unknown]
  - Seasonal allergy [Unknown]
  - Allergic sinusitis [Unknown]
  - Fracture [Unknown]
  - Pulmonary hypertension [Unknown]
  - Maternal exposure during pregnancy [Recovered/Resolved]
